FAERS Safety Report 7451039-3 (Version None)
Quarter: 2011Q2

REPORT INFORMATION
  Report Type: 
  Country: None (occurrence: None)
  Receive Date: 20110502
  Receipt Date: 20110427
  Transmission Date: 20111010
  Serious: Yes (Other)
  Sender: FDA-Public Use
  Company Number: ES-ROCHE-773828

PATIENT
  Age: 34 Year
  Sex: Male

DRUGS (3)
  1. ZYPREXA [Suspect]
     Indication: BIPOLAR DISORDER
     Route: 048
     Dates: start: 20110307, end: 20110312
  2. TRILEPTAL [Suspect]
     Indication: BIPOLAR DISORDER
     Route: 048
     Dates: start: 20110307, end: 20110312
  3. RIVOTRIL [Suspect]
     Indication: BIPOLAR DISORDER
     Route: 048
     Dates: start: 20110307

REACTIONS (3)
  - HEPATITIS [None]
  - AKATHISIA [None]
  - GAIT DISTURBANCE [None]
